FAERS Safety Report 8103284-1 (Version None)
Quarter: 2012Q1

REPORT INFORMATION
  Report Type: 
  Country: None (occurrence: None)
  Receive Date: 20120201
  Receipt Date: 20120118
  Transmission Date: 20120608
  Serious: Yes (Hospitalization)
  Sender: FDA-Public Use
  Company Number: US-MYLANLABS-2011S1000185

PATIENT
  Age: 11 Year
  Sex: Male

DRUGS (45)
  1. LANSOPRAZOLE [Suspect]
     Route: 048
     Dates: start: 20100628, end: 20100728
  2. FUROSEMIDE [Suspect]
     Route: 048
     Dates: start: 20100626, end: 20100706
  3. DEXPANTHENOL [Suspect]
     Route: 041
     Dates: start: 20100604, end: 20100705
  4. HYALURONATE SODIUM [Suspect]
     Route: 047
     Dates: start: 20100723, end: 20100821
  5. ULTIVA [Suspect]
     Route: 042
     Dates: start: 20100621, end: 20100708
  6. ETIZOLAM [Suspect]
     Dosage: UNIT CONT:1
     Route: 048
     Dates: start: 20100701, end: 20100701
  7. FAMOTIDINE [Suspect]
     Route: 041
     Dates: start: 20100617, end: 20100626
  8. PIPERACILLIN SODIUM [Suspect]
     Route: 041
     Dates: start: 20100715, end: 20100716
  9. SPIRONOLACTONE [Suspect]
     Route: 048
     Dates: start: 20100626, end: 20100706
  10. OMEPRAZOLE [Suspect]
     Route: 041
     Dates: start: 20100716, end: 20100721
  11. DEXAMETHASONE [Suspect]
     Route: 042
     Dates: start: 20100617, end: 20100622
  12. ROCURONIUM BROMIDE [Suspect]
     Route: 041
     Dates: start: 20100617, end: 20100706
  13. FLURBIPROFEN [Suspect]
     Route: 041
     Dates: start: 20100709, end: 20100709
  14. AMPICILLIN [Suspect]
     Route: 041
     Dates: start: 20100715, end: 20100716
  15. STREPTOCOCCUS FAECALIS [Suspect]
     Route: 048
     Dates: start: 20100711, end: 20100718
  16. ACETAMINOPHEN [Suspect]
     Indication: PYREXIA
     Route: 048
     Dates: start: 20100627, end: 20100716
  17. TRICLOFOS SODIUM [Suspect]
     Route: 048
     Dates: start: 20100628, end: 20100705
  18. NICARDIPINE HYDROCHLORIDE [Suspect]
     Route: 041
     Dates: start: 20100622, end: 20100624
  19. DEXMEDETOMIDINE HYDROCHLORIDE [Suspect]
     Route: 041
     Dates: start: 20100704, end: 20100705
  20. LIDOCAINE [Suspect]
     Route: 041
     Dates: start: 20100621, end: 20100709
  21. DIAZEPAM [Suspect]
     Route: 048
     Dates: start: 20100702, end: 20100722
  22. MORPHINE [Suspect]
     Route: 041
     Dates: start: 20100621, end: 20100709
  23. PHENOBARBITAL TAB [Suspect]
     Route: 048
     Dates: start: 20100622, end: 20100709
  24. CLINDAMYCIN PHOSPHATE [Suspect]
     Route: 042
     Dates: start: 20100708, end: 20100710
  25. CEFAZOLIN [Suspect]
     Route: 041
     Dates: start: 20100622, end: 20100624
  26. NITRAZEPAM [Suspect]
     Route: 041
     Dates: start: 20100617, end: 20100709
  27. EPINEPHRINE [Suspect]
     Route: 041
     Dates: start: 20100621, end: 20100621
  28. CEFTRIAXONE [Suspect]
     Indication: INFECTION
     Route: 041
     Dates: start: 20100630, end: 20100707
  29. LACTOBACILLUS CASEI [Suspect]
     Route: 048
     Dates: start: 20100702, end: 20100709
  30. SODIUM PICOSULFATE [Suspect]
     Route: 048
     Dates: start: 20100620, end: 20100620
  31. CALCIUM GLUCONATE [Suspect]
     Route: 041
     Dates: start: 20100621, end: 20100621
  32. FENTANYL CITRATE [Suspect]
     Route: 041
     Dates: start: 20100621, end: 20100708
  33. FAMOTIDINE [Suspect]
     Route: 048
     Dates: start: 20100626, end: 20100715
  34. RISPERIDONE [Suspect]
     Route: 048
     Dates: start: 20100702, end: 20100714
  35. BIOFERMIN T [Suspect]
     Route: 048
     Dates: start: 20100711, end: 20100718
  36. HEPARIN SODIUM [Suspect]
     Route: 041
     Dates: start: 20100808, end: 20100812
  37. ATROPINE SULFATE [Suspect]
     Route: 041
     Dates: start: 20100617, end: 20100622
  38. GLYCEROL 2.6% [Suspect]
     Indication: CONSTIPATION
     Route: 054
     Dates: start: 20100621
  39. ACETAMINOPHEN [Suspect]
     Route: 054
     Dates: start: 20100630, end: 20100716
  40. DIAZEPAM [Suspect]
     Route: 048
     Dates: start: 20100622, end: 20100701
  41. MIDAZOLAM [Suspect]
     Route: 041
     Dates: start: 20100621, end: 20100621
  42. HEPARIN SODIUM [Suspect]
     Route: 041
     Dates: start: 20100617
  43. GLYCEROL 2.6% [Suspect]
     Route: 041
     Dates: start: 20100617, end: 20100618
  44. HYDROXYZINE HCL [Suspect]
     Route: 041
     Dates: start: 20100709, end: 20100709
  45. OFLOXACIN [Suspect]
     Route: 047
     Dates: start: 20100728, end: 20100729

REACTIONS (1)
  - DRUG RASH WITH EOSINOPHILIA AND SYSTEMIC SYMPTOMS [None]
